FAERS Safety Report 5329161-7 (Version None)
Quarter: 2007Q2

REPORT INFORMATION
  Report Type: 
  Country: None (occurrence: None)
  Receive Date: 20070518
  Receipt Date: 20070509
  Transmission Date: 20071010
  Serious: Yes (Other)
  Sender: FDA-Public Use
  Company Number: US-PFIZER INC-2007014636

PATIENT
  Sex: Male

DRUGS (2)
  1. NORVASC [Suspect]
  2. LYRICA [Suspect]
     Indication: NEUROPATHY

REACTIONS (3)
  - PARAESTHESIA [None]
  - RENAL TRANSPLANT [None]
  - WEIGHT INCREASED [None]
